FAERS Safety Report 8586579-7 (Version None)
Quarter: 2012Q3

REPORT INFORMATION
  Report Type: 
  Country: None (occurrence: None)
  Receive Date: 20120810
  Receipt Date: 20120809
  Transmission Date: 20120928
  Serious: Yes (Hospitalization)
  Sender: FDA-Public Use
  Company Number: IT-BAYER-2012-081074

PATIENT
  Age: 60 Year
  Sex: Female

DRUGS (6)
  1. BETAMETHASONE SODIUM PHOSPHATE [Concomitant]
     Indication: OSTEOARTHRITIS
     Dosage: 1 MG, QD
     Route: 048
     Dates: start: 20120726, end: 20120807
  2. ASPIRIN [Suspect]
     Indication: PLATELET AGGREGATION INHIBITION
     Dosage: 100 MG, QD
     Route: 048
     Dates: start: 20020801, end: 20120807
  3. TAUXIB [Suspect]
     Indication: OSTEOARTHRITIS
     Dosage: 60 MG, QD
     Route: 048
     Dates: start: 20120726, end: 20120807
  4. CARDURA [Concomitant]
     Indication: HYPERTENSION
     Dosage: 4 MG, QD
     Route: 048
     Dates: start: 20050801, end: 20120807
  5. NEBIVOLOL HCL [Concomitant]
     Indication: HYPERTENSION
     Dosage: 5 MG, QD
     Route: 048
     Dates: start: 20050801, end: 20120807
  6. PHENYLPROPANOLAMINE HCL [Concomitant]
     Dosage: 1 MG, QD
     Route: 048
     Dates: start: 20120701, end: 20120808

REACTIONS (2)
  - RECTAL HAEMORRHAGE [None]
  - DUODENAL ULCER [None]
